FAERS Safety Report 7418741-0 (Version None)
Quarter: 2011Q2

REPORT INFORMATION
  Report Type: 
  Country: None (occurrence: None)
  Receive Date: 20110415
  Receipt Date: 20110318
  Transmission Date: 20111010
  Serious: No
  Sender: FDA-Public Use
  Company Number: US-B.I. PHARMACEUTICALS,INC./RIDGEFIELD-2009-BP-14340BP

PATIENT
  Sex: Female

DRUGS (5)
  1. CATAPRES-TTS-1 [Suspect]
     Indication: HYPERTENSION
     Dosage: 0.2 MG
     Route: 061
     Dates: start: 20060101
  2. METOPROLOL [Concomitant]
     Indication: HYPERTENSION
  3. TEKTURNA [Concomitant]
     Indication: HYPERTENSION
  4. CAPTOPRIL [Concomitant]
     Indication: HYPERTENSION
  5. CLONIDINE [Concomitant]
     Indication: HYPERTENSION

REACTIONS (1)
  - DRUG INEFFECTIVE [None]
